FAERS Safety Report 9349179 (Version 1)
Quarter: 2013Q2

REPORT INFORMATION
  Report Type: Spontaneous
  Country: US (occurrence: US)
  Receive Date: 20130614
  Receipt Date: 20130614
  Transmission Date: 20140414
  Serious: No
  Sender: FDA-Public Use
  Company Number: US-PFIZER INC-2013176155

PATIENT
  Age: 65 Year
  Sex: Female

DRUGS (1)
  1. LATANOPROST [Suspect]
     Dosage: 1 GTT, 1X/DAY
     Route: 047
     Dates: start: 201103

REACTIONS (2)
  - Eye irritation [Recovered/Resolved]
  - Product quality issue [Unknown]
